FAERS Safety Report 16729912 (Version 1)
Quarter: 2019Q3

REPORT INFORMATION
  Report Type: Report from Study
  Country: None (occurrence: CO)
  Receive Date: 20190822
  Receipt Date: 20190822
  Transmission Date: 20191005
  Serious: Yes (Other)
  Sender: FDA-Public Use
  Company Number: CO-ABBVIE-19K-036-2897212-00

PATIENT
  Age: 59 Year
  Sex: Female
  Weight: 60 kg

DRUGS (3)
  1. HUMIRA [Suspect]
     Active Substance: ADALIMUMAB
     Indication: CROHN^S DISEASE
     Route: 058
     Dates: end: 20190315
  2. LOSARTAN. [Concomitant]
     Active Substance: LOSARTAN
     Indication: HYPERTENSION
     Dates: start: 201907
  3. HUMIRA [Suspect]
     Active Substance: ADALIMUMAB
     Indication: CROHN^S DISEASE
     Route: 058
     Dates: start: 20160729

REACTIONS (12)
  - Injury [Recovering/Resolving]
  - Pain in extremity [Recovering/Resolving]
  - Eye disorder [Recovering/Resolving]
  - Stress [Recovering/Resolving]
  - Arthralgia [Unknown]
  - Arthritis [Unknown]
  - Rectal tenesmus [Recovering/Resolving]
  - Joint swelling [Recovering/Resolving]
  - Road traffic accident [Recovering/Resolving]
  - Contusion [Recovering/Resolving]
  - Peripheral swelling [Recovering/Resolving]
  - Inflammation [Unknown]

NARRATIVE: CASE EVENT DATE: 2019
